FAERS Safety Report 4753947-0 (Version None)
Quarter: 2005Q3

REPORT INFORMATION
  Report Type: 
  Country: None (occurrence: None)
  Receive Date: 20050826
  Receipt Date: 20050819
  Transmission Date: 20060218
  Serious: Yes (Hospitalization, Other)
  Sender: FDA-Public Use
  Company Number: FR-ABBOTT-05P-056-0308982-00

PATIENT
  Sex: Female
  Weight: 60 kg

DRUGS (12)
  1. HUMIRA [Suspect]
     Indication: RHEUMATOID ARTHRITIS
     Route: 058
     Dates: start: 20030525
  2. LEFLUNOMIDE [Concomitant]
     Indication: RHEUMATOID ARTHRITIS
     Route: 048
     Dates: start: 20010918
  3. PREDNISONE TAB [Concomitant]
     Indication: RHEUMATOID ARTHRITIS
  4. MELOXICAM [Concomitant]
     Indication: RHEUMATOID ARTHRITIS
  5. OMEPRAZOLE [Concomitant]
     Indication: DRUG USE FOR UNKNOWN INDICATION
  6. RISEDRONATE SODIUM [Concomitant]
     Indication: DRUG USE FOR UNKNOWN INDICATION
  7. CALCIUM CARBONATE [Concomitant]
     Indication: DRUG USE FOR UNKNOWN INDICATION
  8. ACEBUTOLOL [Concomitant]
     Indication: CARDIOVASCULAR DISORDER
     Dates: start: 20010101
  9. FUROSEMIDE [Concomitant]
     Indication: CARDIOVASCULAR DISORDER
     Dates: start: 20010101
  10. ACETYLSALICYLATE LYSINE [Concomitant]
     Indication: CARDIOVASCULAR DISORDER
     Dates: start: 20010101
  11. SIMVASTATIN [Concomitant]
     Indication: CARDIOVASCULAR DISORDER
     Dates: start: 20010101
  12. IRBESARTAN [Concomitant]
     Indication: CARDIOVASCULAR DISORDER
     Dates: start: 20050311

REACTIONS (7)
  - ACANTHOMA [None]
  - KERATOACANTHOMA [None]
  - MUSCLE SPASMS [None]
  - NEOPLASM MALIGNANT [None]
  - NEUROPATHY PERIPHERAL [None]
  - PARAESTHESIA [None]
  - SQUAMOUS CELL CARCINOMA [None]
